FAERS Safety Report 10335244 (Version 1)
Quarter: 2014Q3

REPORT INFORMATION
  Report Type: Spontaneous
  Country: US (occurrence: US)
  Receive Date: 20140723
  Receipt Date: 20140723
  Transmission Date: 20150326
  Serious: No
  Sender: FDA-Public Use
  Company Number: US-ABBVIE-13P-163-1118834-00

PATIENT
  Sex: Female

DRUGS (1)
  1. SYNTHROID [Suspect]
     Active Substance: LEVOTHYROXINE SODIUM
     Indication: PRODUCT USED FOR UNKNOWN INDICATION

REACTIONS (9)
  - Tri-iodothyronine decreased [Unknown]
  - Anxiety [Unknown]
  - Drug intolerance [Unknown]
  - Nervousness [Unknown]
  - Abdominal discomfort [Unknown]
  - Insomnia [Unknown]
  - Malaise [Unknown]
  - Irritability [Unknown]
  - Tremor [Unknown]
